FAERS Safety Report 9266639 (Version 1)
Quarter: 2013Q2

REPORT INFORMATION
  Report Type: Spontaneous
  Country: US (occurrence: US)
  Receive Date: 20130502
  Receipt Date: 20130502
  Transmission Date: 20140414
  Serious: Yes (Hospitalization, Other)
  Sender: FDA-Public Use
  Company Number: US-JNJFOC-20130414119

PATIENT
  Age: 65 Year
  Sex: Female
  Weight: 63 kg

DRUGS (10)
  1. XARELTO [Suspect]
     Indication: CEREBROVASCULAR ACCIDENT PROPHYLAXIS
     Route: 048
  2. XARELTO [Suspect]
     Indication: ATRIAL FIBRILLATION
     Route: 048
  3. KEPPRA [Concomitant]
     Route: 065
  4. ZESTRIL [Concomitant]
     Route: 065
  5. ZOCOR [Concomitant]
     Route: 065
  6. METFORMIN [Concomitant]
     Route: 065
  7. SINEMET [Concomitant]
     Indication: DEMENTIA ALZHEIMER^S TYPE
     Route: 065
  8. ASPIRIN [Concomitant]
     Route: 065
  9. PROTONIX [Concomitant]
     Route: 065
  10. ZOFRAN [Concomitant]
     Route: 065

REACTIONS (3)
  - Renal failure [Unknown]
  - Sepsis [Unknown]
  - International normalised ratio increased [Unknown]
